FAERS Safety Report 23809349 (Version 1)
Quarter: 2024Q2

REPORT INFORMATION
  Report Type: Spontaneous
  Country: US (occurrence: None)
  Receive Date: 20240501
  Receipt Date: 20240501
  Transmission Date: 20240716
  Serious: Yes (Hospitalization)
  Sender: FDA-Public Use
  Company Number: None

PATIENT
  Sex: Male

DRUGS (1)
  1. PROCRIT [Suspect]
     Active Substance: ERYTHROPOIETIN
     Indication: Anaemia of chronic disease
     Dosage: 20,000 UNITS EVERY 2 WEEKS SUBCUTANEOUSLY?
     Route: 058
     Dates: start: 202308

REACTIONS (4)
  - Haemoglobin decreased [None]
  - Epigastric discomfort [None]
  - Gastric haemorrhage [None]
  - Fatigue [None]
